FAERS Safety Report 5221345-1 (Version None)
Quarter: 2007Q1

REPORT INFORMATION
  Report Type: 
  Country: None (occurrence: None)
  Receive Date: 20070126
  Receipt Date: 20070116
  Transmission Date: 20070707
  Serious: Yes (Death)
  Sender: FDA-Public Use
  Company Number: SG-PFIZER INC-2007002458

PATIENT
  Sex: Male
  Weight: 45 kg

DRUGS (7)
  1. SUTENT [Suspect]
     Indication: GASTROINTESTINAL STROMAL TUMOUR
     Route: 048
     Dates: start: 20061222, end: 20061223
  2. SUTENT [Suspect]
     Route: 048
     Dates: start: 20061224, end: 20061226
  3. SUTENT [Suspect]
     Route: 048
     Dates: start: 20061227, end: 20061229
  4. AUGMENTIN '125' [Concomitant]
     Route: 042
  5. NEXIUM [Concomitant]
     Route: 042
     Dates: start: 20061218, end: 20061225
  6. ALBUMIN (HUMAN) [Concomitant]
     Route: 042
     Dates: start: 20061223, end: 20061225
  7. MERONEM [Concomitant]
     Route: 042
     Dates: start: 20061229, end: 20070101

REACTIONS (7)
  - ANOXIC ENCEPHALOPATHY [None]
  - BLOOD BILIRUBIN INCREASED [None]
  - CARDIO-RESPIRATORY ARREST [None]
  - COMA [None]
  - LIVER FUNCTION TEST ABNORMAL [None]
  - RENAL FAILURE [None]
  - TACHYCARDIA [None]
